FAERS Safety Report 9898869 (Version 1)
Quarter: 2014Q1

REPORT INFORMATION
  Report Type: Report from Study
  Country: US (occurrence: US)
  Receive Date: 20140214
  Receipt Date: 20140214
  Transmission Date: 20141002
  Serious: Yes (Hospitalization, Other)
  Sender: FDA-Public Use
  Company Number: US-ABBVIE-14P-163-1198268-00

PATIENT
  Age: 73 Year
  Sex: Female
  Weight: 77.63 kg

DRUGS (2)
  1. HUMIRA [Suspect]
     Indication: PSORIASIS
     Route: 058
     Dates: start: 201311
  2. UNKNOWN DIABETES MEDICATION [Concomitant]
     Indication: DIABETES MELLITUS

REACTIONS (3)
  - Haemoglobin decreased [Recovering/Resolving]
  - Haemoglobin decreased [Recovered/Resolved]
  - Iron deficiency [Unknown]
